FAERS Safety Report 4941878-2 (Version None)
Quarter: 2006Q1

REPORT INFORMATION
  Report Type: 
  Country: None (occurrence: None)
  Receive Date: 20060308
  Receipt Date: 20060225
  Transmission Date: 20060701
  Serious: Yes (Hospitalization)
  Sender: FDA-Public Use
  Company Number: 2006001690

PATIENT
  Age: 67 Year
  Sex: Female
  Weight: 136.0791 kg

DRUGS (18)
  1. LIPITOR [Suspect]
     Indication: BLOOD CHOLESTEROL INCREASED
     Dosage: 10 MG (10 MG, 1 IN 1 D), UNKNOWN
     Route: 065
  2. GLUCOTROL XL [Suspect]
     Indication: DIABETES MELLITUS
     Dosage: 5 MG (5 MG, 1 IN 1 D), UNKNOWN
     Route: 065
  3. NEURONTIN [Suspect]
     Indication: NEUROPATHY
     Dosage: 2400 MG (800 MG, 3 IN 1 D), UNKNOWN
     Route: 065
     Dates: start: 20050101
  4. REQUIP [Concomitant]
  5. AVANDIA [Concomitant]
  6. ACTOS [Concomitant]
  7. PREDNISONE TAB [Concomitant]
  8. LASIX [Concomitant]
  9. COZAAR [Concomitant]
  10. LANOXIN [Concomitant]
  11. THEOPHYLLINE [Concomitant]
  12. ULTRAM [Concomitant]
  13. ADVAIR DISKUS (FLUTICASONE PROPIONATE, SALMETEROL XINAFOATE) [Concomitant]
  14. NITRO-DUR [Concomitant]
  15. LACTULOSE [Concomitant]
  16. PROVENTIL [Concomitant]
  17. DUONEB (IPRATROPIUM BROMIDE, SALBUTAMOL SULFATE) [Concomitant]
  18. OXYGEN (OXYGEN) [Concomitant]

REACTIONS (7)
  - ADVERSE EVENT [None]
  - DIABETES MELLITUS INADEQUATE CONTROL [None]
  - FLUID OVERLOAD [None]
  - HYPOXIA [None]
  - NEUROPATHY [None]
  - PHARMACEUTICAL PRODUCT COMPLAINT [None]
  - PULMONARY CONGESTION [None]
